FAERS Safety Report 6639113-2 (Version None)
Quarter: 2010Q1

REPORT INFORMATION
  Report Type: 
  Country: None (occurrence: None)
  Receive Date: 20100317
  Receipt Date: 20100309
  Transmission Date: 20100710
  Serious: Yes (Death, Hospitalization)
  Sender: FDA-Public Use
  Company Number: US-AMGEN-QUU398478

PATIENT
  Sex: Male

DRUGS (5)
  1. NEULASTA [Suspect]
     Indication: CHEMOTHERAPY
     Route: 065
  2. DOXORUBICIN HCL [Concomitant]
  3. BLEOMYCIN [Concomitant]
  4. VINBLASTINE [Concomitant]
  5. DACARBAZINE [Concomitant]

REACTIONS (3)
  - DEATH [None]
  - DYSPNOEA [None]
  - LUNG DISORDER [None]
